FAERS Safety Report 9870209 (Version 1)
Quarter: 2014Q1

REPORT INFORMATION
  Report Type: Spontaneous
  Country: US (occurrence: None)
  Receive Date: 20140204
  Receipt Date: 20140204
  Transmission Date: 20141002
  Serious: Yes (Death, Disabling)
  Sender: FDA-Public Use
  Company Number: None

PATIENT
  Age: 88 Year
  Sex: Male
  Weight: 58.97 kg

DRUGS (3)
  1. SEROQUEL [Suspect]
     Indication: DEMENTIA
     Route: 048
     Dates: start: 20130725, end: 20131015
  2. SEROQUEL [Suspect]
     Indication: RESTLESSNESS
     Route: 048
     Dates: start: 20130725, end: 20131015
  3. HALDOL [Suspect]
     Dosage: 1-2 PILLS BY MOUTH AT BED TIME.

REACTIONS (10)
  - Feeling abnormal [None]
  - Agitation [None]
  - Speech disorder [None]
  - Communication disorder [None]
  - Posture abnormal [None]
  - Fatigue [None]
  - Incontinence [None]
  - Abdominal distension [None]
  - Abasia [None]
  - Prostatomegaly [None]
